FAERS Safety Report 18919283 (Version 1)
Quarter: 2021Q1

REPORT INFORMATION
  Report Type: Spontaneous
  Country: US (occurrence: US)
  Receive Date: 20210220
  Receipt Date: 20210220
  Transmission Date: 20210420
  Serious: Yes (Hospitalization)
  Sender: FDA-Public Use
  Company Number: US-TORRENT-00010730

PATIENT
  Age: 49 Year
  Sex: Male

DRUGS (1)
  1. CARBAMAZEPINE. [Suspect]
     Active Substance: CARBAMAZEPINE
     Indication: TRIGEMINAL NEURALGIA

REACTIONS (5)
  - Headache [Unknown]
  - Pyrexia [Recovered/Resolved]
  - Dizziness [Unknown]
  - Vision blurred [Unknown]
  - Hepatic enzyme increased [Unknown]
